FAERS Safety Report 16656703 (Version 1)
Quarter: 2019Q3

REPORT INFORMATION
  Report Type: Spontaneous
  Country: NL (occurrence: NL)
  Receive Date: 20190801
  Receipt Date: 20190801
  Transmission Date: 20191004
  Serious: Yes (Death)
  Sender: FDA-Public Use
  Company Number: NL-HIKMA PHARMACEUTICALS USA INC.-NL-H14001-19-46343

PATIENT
  Age: 72 Year
  Sex: Male
  Weight: 76 kg

DRUGS (15)
  1. XARELTO [Concomitant]
     Active Substance: RIVAROXABAN
     Indication: PRODUCT USED FOR UNKNOWN INDICATION
     Dosage: 1 X PER DAY 1 PIECE; 8:00 AM;
  2. PERINDOPRIL [Concomitant]
     Active Substance: PERINDOPRIL
     Indication: PRODUCT USED FOR UNKNOWN INDICATION
     Dosage: 1 X PER DAY 1 PIECE; 8 A.M.
  3. AMLODIPINE [Concomitant]
     Active Substance: AMLODIPINE BESYLATE
     Indication: PRODUCT USED FOR UNKNOWN INDICATION
     Dosage: 1 X PER DAY 1 PIECE; 8:00 AM;
  4. AMIODARONE [Suspect]
     Active Substance: AMIODARONE
     Indication: ATRIAL FLUTTER
     Dosage: SINGLE GIFT AMIODARONE 150 MG IV
     Route: 042
  5. AERIUS [Concomitant]
     Indication: PRODUCT USED FOR UNKNOWN INDICATION
     Dosage: 1 X PER DAY 1 PIECE; 6:00 PM;
  6. VASELINA [Concomitant]
     Indication: PRODUCT USED FOR UNKNOWN INDICATION
     Dosage: IF NECESSARY 1 X DAILY DOSE OF OWN MEDICATION; 8 A.M. (IF REQUIRED);
  7. NITROLINGUAL [Concomitant]
     Active Substance: NITROGLYCERIN
     Indication: PRODUCT USED FOR UNKNOWN INDICATION
     Dosage: IF NECESSARY WITH CHEST PAIN 1 SPRAY UNDER THE TONGUE. IF NECESSARY, REPEAT AFTER 5 MINUTES AND IMME
  8. PANTOPRAZOL [Concomitant]
     Active Substance: PANTOPRAZOLE SODIUM
     Indication: PRODUCT USED FOR UNKNOWN INDICATION
     Dosage: 1 X PER DAY 1 PIECE; 07:00;
  9. FERRO FUMARAT [Concomitant]
     Indication: PRODUCT USED FOR UNKNOWN INDICATION
     Dosage: 3 X 1 PIECE PER DAY; 8:00 AM; 12:00; 5:00 PM
  10. AMIODARONE [Suspect]
     Active Substance: AMIODARONE
     Indication: ATRIAL FLUTTER
     Dosage: 1X PER DAG 100 MG
     Dates: start: 2018, end: 20190526
  11. METOPROLOL. [Concomitant]
     Active Substance: METOPROLOL
     Indication: PRODUCT USED FOR UNKNOWN INDICATION
     Dosage: 1 X PER DAY 1 PIECE; 12:00
  12. LOCOID [Concomitant]
     Active Substance: HYDROCORTISONE BUTYRATE
     Indication: PRODUCT USED FOR UNKNOWN INDICATION
     Dosage: ()
  13. ROSUVASTATINE [Concomitant]
     Active Substance: ROSUVASTATIN
     Indication: PRODUCT USED FOR UNKNOWN INDICATION
     Dosage: 1 X PER DAY 1 PIECE; 10:00 PM
  14. AMOXICILLIN. [Concomitant]
     Active Substance: AMOXICILLIN
     Indication: PRODUCT USED FOR UNKNOWN INDICATION
     Dosage: 3 TIMES A DAY 1 PIECE EVERY 8 HOURS - UNTIL 24-5-19; 8:00 AM; 3:00 PM; 10:00 PM;
  15. COMBODART [Concomitant]
     Active Substance: DUTASTERIDE\TAMSULOSIN
     Indication: PRODUCT USED FOR UNKNOWN INDICATION
     Dosage: 1 X PER DAY 1 PIECE; 10:00 PM

REACTIONS (1)
  - Interstitial lung disease [Fatal]

NARRATIVE: CASE EVENT DATE: 201903
